FAERS Safety Report 21040264 (Version 1)
Quarter: 2022Q3

REPORT INFORMATION
  Report Type: Spontaneous
  Country: CN (occurrence: None)
  Receive Date: 20220704
  Receipt Date: 20220704
  Transmission Date: 20221027
  Serious: Yes (Other)
  Sender: FDA-Public Use
  Company Number: CN-ROCHE-3127822

PATIENT
  Age: 46 Year
  Sex: Male

DRUGS (24)
  1. RITUXIMAB [Suspect]
     Active Substance: RITUXIMAB
     Indication: Diffuse large B-cell lymphoma
     Dosage: R-CHOP TREATMENT ON 30-SEP-2020, 21-OCT-2020, 11-NOV-2020, 03-DEC-2020, 23-?DEC-2020, 13-JAN-2021
     Route: 041
  2. RITUXIMAB [Suspect]
     Active Substance: RITUXIMAB
     Dosage: TREATMENT ON 03-FEB-2021, 14-FEB-2021
     Route: 042
  3. RITUXIMAB [Suspect]
     Active Substance: RITUXIMAB
     Dosage: R-DHAP, D1
     Route: 042
     Dates: start: 20211114
  4. OBINUTUZUMAB [Suspect]
     Active Substance: OBINUTUZUMAB
     Indication: Diffuse large B-cell lymphoma
     Dosage: TREATMENT ON 11-FEB-2022, 20-FEB-2022
     Route: 065
     Dates: start: 2022
  5. OBINUTUZUMAB [Suspect]
     Active Substance: OBINUTUZUMAB
     Dosage: D0, TREATMENT ON 02-MAR-2022, 31-MAR-2022
     Route: 065
  6. OBINUTUZUMAB [Suspect]
     Active Substance: OBINUTUZUMAB
     Dosage: TREATMENT ON 11-FEB-2022, 20-FEB-2022
     Route: 065
  7. CYCLOPHOSPHAMIDE [Concomitant]
     Active Substance: CYCLOPHOSPHAMIDE
     Indication: Diffuse large B-cell lymphoma
     Dosage: R-CHOP TREATMENT ON 30-SEP-2020, 21-OCT-2020, 11-NOV-2020, 03-DEC-2020, 23-?DEC-2020, 13-JAN-2021
  8. DOXORUBICIN [Concomitant]
     Active Substance: DOXORUBICIN
     Indication: Diffuse large B-cell lymphoma
     Dosage: R-CHOP TREATMENT ON 30-SEP-2020, 21-OCT-2020, 11-NOV-2020, 03-DEC-2020, 23-?DEC-2020, 13-JAN-2021
  9. VINCRISTINE [Concomitant]
     Active Substance: VINCRISTINE
     Indication: Diffuse large B-cell lymphoma
     Dosage: R-CHOP TREATMENT ON 30-SEP-2020, 21-OCT-2020, 11-NOV-2020, 03-DEC-2020, 23-?DEC-2020, 13-JAN-2021
  10. PREDNISONE [Concomitant]
     Active Substance: PREDNISONE
     Indication: Diffuse large B-cell lymphoma
     Dosage: R-CHOP TREATMENT ON 30-SEP-2020, 21-OCT-2020, 11-NOV-2020, 03-DEC-2020, 23-?DEC-2020, 13-JAN-2021
  11. CISPLATIN [Concomitant]
     Active Substance: CISPLATIN
     Indication: Diffuse large B-cell lymphoma
     Dosage: R-DHAP, CI24H, D2
     Route: 042
     Dates: start: 20211114
  12. CYTARABINE [Concomitant]
     Active Substance: CYTARABINE
     Indication: Diffuse large B-cell lymphoma
     Dosage: R-DHAP, CI2H, D3
     Route: 042
     Dates: start: 20211114
  13. PLERIXAFOR [Concomitant]
     Active Substance: PLERIXAFOR
     Indication: Diffuse large B-cell lymphoma
     Route: 058
     Dates: start: 20211127
  14. GEMCITABINE [Concomitant]
     Active Substance: GEMCITABINE
     Indication: Diffuse large B-cell lymphoma
     Dates: start: 20211221
  15. OXALIPLATIN [Concomitant]
     Active Substance: OXALIPLATIN
     Indication: Diffuse large B-cell lymphoma
     Dosage: D1
     Dates: start: 20211221
  16. DECITABINE [Concomitant]
     Active Substance: DECITABINE
     Indication: Diffuse large B-cell lymphoma
     Dates: start: 20211221
  17. OCTREOTIDE [Concomitant]
     Active Substance: OCTREOTIDE
     Indication: Diffuse large B-cell lymphoma
  18. POLATUZUMAB VEDOTIN [Concomitant]
     Active Substance: POLATUZUMAB VEDOTIN
     Indication: Diffuse large B-cell lymphoma
     Dosage: D2
     Dates: start: 2022
  19. MITOXANTRONE [Concomitant]
     Active Substance: MITOXANTRONE HYDROCHLORIDE
     Indication: Diffuse large B-cell lymphoma
     Dosage: D9
     Dates: start: 2022
  20. MITOXANTRONE [Concomitant]
     Active Substance: MITOXANTRONE HYDROCHLORIDE
     Dosage: D1, TREATMENT ON 02-MAR-2022, 31-MAR-2022
  21. IFOSFAMIDE [Concomitant]
     Active Substance: IFOSFAMIDE
     Indication: Diffuse large B-cell lymphoma
     Dosage: D1
     Dates: start: 20220302
  22. IFOSFAMIDE [Concomitant]
     Active Substance: IFOSFAMIDE
     Dosage: D3
     Dates: start: 20220331
  23. ETOPOSIDE [Concomitant]
     Active Substance: ETOPOSIDE
     Indication: Diffuse large B-cell lymphoma
     Dosage: D1
     Route: 065
     Dates: start: 20220302
  24. ETOPOSIDE [Concomitant]
     Active Substance: ETOPOSIDE
     Dosage: D3
     Dates: start: 20220331

REACTIONS (2)
  - Myelosuppression [Unknown]
  - Off label use [Unknown]
